FAERS Safety Report 25312835 (Version 1)
Quarter: 2025Q2

REPORT INFORMATION
  Report Type: Spontaneous
  Country: PK (occurrence: PK)
  Receive Date: 20250514
  Receipt Date: 20250514
  Transmission Date: 20250717
  Serious: Yes (Death, Other)
  Sender: PFIZER
  Company Number: PK-PFIZER INC-PV202500052102

PATIENT
  Age: 40 Year
  Sex: Female

DRUGS (5)
  1. IBRANCE [Suspect]
     Active Substance: PALBOCICLIB
     Indication: Breast cancer metastatic
     Route: 048
  2. IBRANCE [Suspect]
     Active Substance: PALBOCICLIB
     Dosage: 75 MG, 1X/DAY
     Route: 048
     Dates: end: 20250506
  3. MANNITOL [Concomitant]
     Active Substance: MANNITOL
     Route: 042
  4. MEROPENEM [Concomitant]
     Active Substance: MEROPENEM
     Dosage: 1 G, 2X/DAY
     Route: 042
  5. ALBUMIN HUMAN [Concomitant]
     Active Substance: ALBUMIN HUMAN
     Dosage: UNK, 2X/DAY
     Route: 042

REACTIONS (3)
  - Death [Fatal]
  - Metastases to central nervous system [Unknown]
  - White blood cell count decreased [Unknown]

NARRATIVE: CASE EVENT DATE: 20250506
